FAERS Safety Report 11906007 (Version 3)
Quarter: 2016Q1

REPORT INFORMATION
  Report Type: Spontaneous
  Country: IT (occurrence: IT)
  Receive Date: 20160111
  Receipt Date: 20160115
  Transmission Date: 20160526
  Serious: Yes (Hospitalization)
  Sender: FDA-Public Use
  Company Number: IT-ROCHE-1691963

PATIENT
  Age: 73 Year
  Sex: Female

DRUGS (11)
  1. TARGIN [Concomitant]
     Active Substance: NALOXONE HYDROCHLORIDE\OXYCODONE HYDROCHLORIDE
     Dosage: 5 MG/2.5 MG PROLONGED-RELEASE TABLETS 20 TABLETS
     Route: 048
  2. OMEPRAZOLE. [Concomitant]
     Active Substance: OMEPRAZOLE
     Route: 048
  3. MOTILIUM [Concomitant]
     Active Substance: DOMPERIDONE
     Dosage: 10 MG FILM-COATED TABLETS 30 TABLETS
     Route: 048
  4. KARVEZIDE [Concomitant]
     Active Substance: HYDROCHLOROTHIAZIDE\IRBESARTAN
     Dosage: 300 MG / 12.5 MG 56 TABLETS
     Route: 048
  5. MABTHERA [Suspect]
     Active Substance: RITUXIMAB
     Indication: RHEUMATOID ARTHRITIS
     Dosage: 1 VIAL 500 MG 50 ML
     Route: 042
  6. FOSAVANCE [Concomitant]
     Active Substance: ALENDRONATE SODIUM\CHOLECALCIFEROL
     Dosage: 70MG/5600 IU TABLET
     Route: 048
  7. DELTACORTENE [Concomitant]
     Active Substance: PREDNISONE
     Dosage: 5 MG TABLETS 10 TABLETS
     Route: 048
  8. RYTMONORM [Concomitant]
     Active Substance: PROPAFENONE
     Route: 048
  9. EUTIROX [Concomitant]
     Active Substance: LEVOTHYROXINE SODIUM
     Dosage: 75 MICROGRAM TABLETS 50 TABLETS
     Route: 048
  10. PLAQUENIL [Concomitant]
     Active Substance: HYDROXYCHLOROQUINE SULFATE
     Dosage: 25 PILLS
     Route: 048
  11. DIBASE [Concomitant]
     Active Substance: CHOLECALCIFEROL
     Dosage: 25000 INTERNATIONAL UNITS, IN THOUSANDS
     Route: 048

REACTIONS (1)
  - Recurrent cancer [Recovering/Resolving]

NARRATIVE: CASE EVENT DATE: 20151130
